FAERS Safety Report 26058042 (Version 1)
Quarter: 2025Q4

REPORT INFORMATION
  Report Type: Spontaneous
  Country: EU (occurrence: EU)
  Receive Date: 20251118
  Receipt Date: 20251118
  Transmission Date: 20260117
  Serious: Yes (Other)
  Sender: ALEXION PHARMACEUTICALS
  Company Number: EU-AstraZeneca-CH-00993413AMP

PATIENT
  Sex: Female

DRUGS (1)
  1. PULMICORT TURBUHALER [Suspect]
     Active Substance: BUDESONIDE
     Dosage: 200 MICROGRAM

REACTIONS (5)
  - Cough [Unknown]
  - Pneumonia [Unknown]
  - Product dose omission issue [Unknown]
  - Suffocation feeling [Unknown]
  - Product complaint [Unknown]
